FAERS Safety Report 4718301-6 (Version None)
Quarter: 2005Q3

REPORT INFORMATION
  Report Type: 
  Country: None (occurrence: None)
  Receive Date: 20050719
  Receipt Date: 20050419
  Transmission Date: 20060218
  Serious: Yes (Hospitalization, Other)
  Sender: FDA-Public Use
  Company Number: 2005062922

PATIENT
  Sex: Female
  Weight: 52.1637 kg

DRUGS (3)
  1. CELEBREX [Suspect]
     Indication: FIBROMYALGIA
     Dosage: 200 MG (200 MG, 1 IN 1 D), ORAL
     Route: 048
     Dates: start: 20000101, end: 20040101
  2. ALL OTHER THERAPEUTIC PRODUCTS (ALL OTHER THERAPEUTIC PRODUCTS) [Concomitant]
  3. DIAZEPAM [Concomitant]

REACTIONS (8)
  - BLOOD CHOLESTEROL INCREASED [None]
  - CYST [None]
  - FALL [None]
  - GASTRIC DISORDER [None]
  - HEADACHE [None]
  - MUSCLE SPASMS [None]
  - MYOCARDIAL INFARCTION [None]
  - RECTAL HAEMORRHAGE [None]
